FAERS Safety Report 17934320 (Version 1)
Quarter: 2020Q2

REPORT INFORMATION
  Report Type: Spontaneous
  Country: US (occurrence: US)
  Receive Date: 20200623
  Receipt Date: 20200623
  Transmission Date: 20200714
  Serious: Yes (Death)
  Sender: FDA-Public Use
  Company Number: None

PATIENT
  Age: 81 Year
  Sex: Male
  Weight: 95.4 kg

DRUGS (22)
  1. NORMAL SALINE IVF [Concomitant]
     Dates: start: 20200605, end: 20200610
  2. POTASSIUM CHLORIDE. [Concomitant]
     Active Substance: POTASSIUM CHLORIDE
     Dates: start: 20200605, end: 20200610
  3. AMLODIPINE [Concomitant]
     Active Substance: AMLODIPINE BESYLATE
     Dates: start: 20200606, end: 20200610
  4. EPOETIN ALFA-EPBX. [Concomitant]
     Active Substance: EPOETIN ALFA-EPBX
     Dates: start: 20200609, end: 20200609
  5. ALLOPURINOL. [Concomitant]
     Active Substance: ALLOPURINOL
     Dates: start: 20200606, end: 20200611
  6. AZITHROMYCIN ANHYDROUS. [Concomitant]
     Active Substance: AZITHROMYCIN ANHYDROUS
     Dates: start: 20200605, end: 20200610
  7. OMEPRAZOLE. [Concomitant]
     Active Substance: OMEPRAZOLE
     Dates: start: 20200610, end: 20200611
  8. CINACALCET. [Concomitant]
     Active Substance: CINACALCET
     Dates: start: 20200606, end: 20200611
  9. CEFTRIAXONE. [Concomitant]
     Active Substance: CEFTRIAXONE
     Dates: start: 20200605, end: 20200610
  10. APRESOLINE HYDROCHLORIDE [Concomitant]
     Active Substance: HYDRALAZINE HYDROCHLORIDE
     Dates: start: 20200606, end: 20200611
  11. LOSARTAN. [Concomitant]
     Active Substance: LOSARTAN
     Dates: start: 20200606, end: 20200609
  12. CONVALESCENT PLASMA [Concomitant]
     Active Substance: HUMAN PLASMA
     Dates: start: 20200608, end: 20200608
  13. ACTEMRA [Concomitant]
     Active Substance: TOCILIZUMAB
     Dates: start: 20200608, end: 20200608
  14. BUMETANIDE. [Concomitant]
     Active Substance: BUMETANIDE
     Dates: start: 20200606, end: 20200610
  15. ENOXAPARIN [Concomitant]
     Active Substance: ENOXAPARIN
     Dates: start: 20200605, end: 20200609
  16. REMDESIVIR. [Suspect]
     Active Substance: REMDESIVIR
     Indication: COVID-19 PNEUMONIA
     Route: 040
     Dates: start: 20200607, end: 20200608
  17. VENTOLIN [Concomitant]
     Active Substance: ALBUTEROL SULFATE
     Dates: start: 20200606, end: 20200611
  18. APIXABAN [Concomitant]
     Active Substance: APIXABAN
     Dates: start: 20200609, end: 20200611
  19. SODIUM BICARBONATE. [Concomitant]
     Active Substance: SODIUM BICARBONATE
     Dates: start: 20200606, end: 20200611
  20. ATROVENT [Concomitant]
     Active Substance: IPRATROPIUM BROMIDE
     Dates: start: 20200606, end: 20200611
  21. LIPITOR [Concomitant]
     Active Substance: ATORVASTATIN CALCIUM
     Dates: start: 20200606, end: 20200611
  22. LOPRESSOR [Concomitant]
     Active Substance: METOPROLOL TARTRATE
     Dates: start: 20200606, end: 20200611

REACTIONS (2)
  - Acute kidney injury [None]
  - Respiratory acidosis [None]

NARRATIVE: CASE EVENT DATE: 20200611
